FAERS Safety Report 8774876 (Version 4)
Quarter: 2021Q1

REPORT INFORMATION
  Report Type: Spontaneous
  Country: DE (occurrence: DE)
  Receive Date: 20120910
  Receipt Date: 20210310
  Transmission Date: 20210420
  Serious: Yes (Hospitalization, Congenital Anomaly, Other)
  Sender: FDA-Public Use
  Company Number: DE-JNJFOC-20120814892

PATIENT
  Age: 7 Week
  Sex: Female
  Weight: 1.62 kg

DRUGS (20)
  1. PROMETHAZINE [Suspect]
     Active Substance: PROMETHAZINE HYDROCHLORIDE
     Dosage: 10 MG, 3X/DAY (TID)
     Route: 064
     Dates: start: 20110527, end: 2011
  2. CARBAMAZEPIN [Concomitant]
     Active Substance: CARBAMAZEPINE
     Dosage: 300 MG, QD (100 MG, TID)
     Route: 064
     Dates: start: 20110927, end: 20111124
  3. IBUPROFEN. [Concomitant]
     Active Substance: IBUPROFEN
     Dosage: 1 OT, AS NEEDED (PRN); AS REQUIRED
     Route: 064
     Dates: start: 20110927, end: 20111124
  4. RISPERDAL CONSTA [Suspect]
     Active Substance: RISPERIDONE
     Indication: PSYCHOTIC DISORDER
     Dosage: UNTIL DAY 4 OF THE 4 TH GESTATIONAL WEEK; 25 [MG/2WEEKS (AB 4.4 3WEEKS)]/ TILL WK 5 EVERY 2 WKS
     Route: 064
     Dates: start: 20110401, end: 2011
  5. SEROQUEL [Suspect]
     Active Substance: QUETIAPINE FUMARATE
     Dosage: 400 MG, QD
     Route: 064
     Dates: start: 201104, end: 201105
  6. BETAMETHASON [Concomitant]
     Active Substance: BETAMETHASONE
     Indication: MATERNAL THERAPY TO ENHANCE FOETAL LUNG MATURITY
     Route: 064
     Dates: start: 20111120, end: 20111121
  7. INSULIN [Concomitant]
     Active Substance: INSULIN NOS
     Indication: GESTATIONAL DIABETES
     Dosage: FROM GESTATIONAL WEEK 27
     Route: 064
     Dates: start: 2011
  8. SEROQUEL [Suspect]
     Active Substance: QUETIAPINE FUMARATE
     Route: 064
     Dates: start: 201105, end: 20111124
  9. PROMETHAZINE [Suspect]
     Active Substance: PROMETHAZINE HYDROCHLORIDE
     Route: 064
     Dates: start: 20110527, end: 2011
  10. TOLPERISONE [Concomitant]
     Active Substance: TOLPERISONE
     Indication: PRODUCT USED FOR UNKNOWN INDICATION
     Dosage: 0. ? 5.2 GESTATIONAL WEEK
     Route: 064
     Dates: start: 20110409, end: 20110516
  11. IBUPROFEN. [Concomitant]
     Active Substance: IBUPROFEN
     Indication: TRIGEMINAL NEURALGIA
     Dosage: UNK UNK, AS NEEDED (PRN); AS REQUIRED
     Route: 064
     Dates: start: 20110927, end: 20111124
  12. MELPERONE [Concomitant]
     Active Substance: MELPERONE
     Route: 064
     Dates: start: 201104, end: 20110516
  13. RISPERDAL CONSTA [Suspect]
     Active Substance: RISPERIDONE
  14. PROMETHAZINE [Suspect]
     Active Substance: PROMETHAZINE HYDROCHLORIDE
     Indication: RESTLESSNESS
     Dosage: 200 MG, QD (50 MG, 4X/DAY (QID)
     Route: 064
     Dates: start: 2011, end: 20111124
  15. RISPERDAL CONSTA [Suspect]
     Active Substance: RISPERIDONE
     Dosage: 25 [MG/2WEEKS (AB 4.4 3WEEKS)]/ TILL WK 5 EVERY 2 WKS
     Route: 064
     Dates: start: 201104, end: 2011
  16. MELPERONE [Concomitant]
     Active Substance: MELPERONE
     Indication: PSYCHOTIC DISORDER
     Route: 064
     Dates: start: 20110409, end: 20110516
  17. RISPERDAL CONSTA [Suspect]
     Active Substance: RISPERIDONE
     Dosage: FROM GESTATIONAL WEEK 5 TILL 24?NOV?2011
     Route: 064
     Dates: start: 20110401, end: 20111124
  18. ACETYLSALICYLSAEURE [Concomitant]
     Active Substance: ASPIRIN
     Indication: PRE-ECLAMPSIA
     Dosage: DAILY DOSE: 100 MG
     Route: 064
     Dates: start: 2011, end: 20111120
  19. SEROQUEL [Suspect]
     Active Substance: QUETIAPINE FUMARATE
     Indication: PSYCHOTIC DISORDER
     Route: 064
     Dates: start: 20110409, end: 201105
  20. CARBAMAZEPIN [Concomitant]
     Active Substance: CARBAMAZEPINE
     Indication: TRIGEMINAL NEURALGIA
     Dosage: 100 MG, 3X/DAY (TID)
     Route: 064
     Dates: start: 20110927, end: 20111124

REACTIONS (6)
  - Premature baby [Unknown]
  - Low birth weight baby [Unknown]
  - Tracheo-oesophageal fistula [Recovered/Resolved with Sequelae]
  - Haemangioma congenital [Unknown]
  - Foetal exposure during pregnancy [Recovered/Resolved]
  - Oesophageal atresia [Recovered/Resolved with Sequelae]

NARRATIVE: CASE EVENT DATE: 20110527
